FAERS Safety Report 23542671 (Version 1)
Quarter: 2024Q1

REPORT INFORMATION
  Report Type: Spontaneous
  Country: GB (occurrence: GB)
  Receive Date: 20240220
  Receipt Date: 20240220
  Transmission Date: 20240410
  Serious: Yes (Other)
  Sender: FDA-Public Use
  Company Number: None

PATIENT
  Age: 74 Year
  Sex: Female
  Weight: 83 kg

DRUGS (13)
  1. AZITHROMYCIN [Suspect]
     Active Substance: AZITHROMYCIN
     Indication: Lower respiratory tract infection
     Dosage: TIME INTERVAL: 0.33333333 WEEKS: MONDAY/WEDNESDAY/FRIDAY, DURATION: 5 DAYS
     Route: 065
     Dates: start: 20240131, end: 20240205
  2. SERTRALINE [Concomitant]
     Active Substance: SERTRALINE HYDROCHLORIDE
  3. CETIRIZINE [Concomitant]
     Active Substance: CETIRIZINE HYDROCHLORIDE
  4. LANSOPRAZOLE [Concomitant]
     Active Substance: LANSOPRAZOLE
  5. LINAGLIPTIN [Concomitant]
     Active Substance: LINAGLIPTIN
  6. CLOPIDOGREL [Concomitant]
     Active Substance: CLOPIDOGREL BISULFATE
  7. AMLODIPINE [Concomitant]
     Active Substance: AMLODIPINE BESYLATE
  8. ACETAMINOPHEN [Concomitant]
     Active Substance: ACETAMINOPHEN
  9. CARBOCYSTEINE [Concomitant]
     Active Substance: CARBOCYSTEINE
  10. FUROSEMIDE [Concomitant]
     Active Substance: FUROSEMIDE
     Dosage: GENERICS UK FRUSEMIDE
  11. ATORVASTATIN [Concomitant]
     Active Substance: ATORVASTATIN
  12. HYDROCORTISONE [Concomitant]
     Active Substance: HYDROCORTISONE
  13. METHENAMINE [Concomitant]
     Active Substance: METHENAMINE

REACTIONS (3)
  - Confusional state [Recovered/Resolved]
  - Delirium [Unknown]
  - Joint swelling [Not Recovered/Not Resolved]

NARRATIVE: CASE EVENT DATE: 20240202
